FAERS Safety Report 6257366-X (Version None)
Quarter: 2009Q3

REPORT INFORMATION
  Report Type: 
  Country: None (occurrence: None)
  Receive Date: 20090706
  Receipt Date: 20090703
  Transmission Date: 20100115
  Serious: Yes (Hospitalization)
  Sender: FDA-Public Use
  Company Number: PHHO2007US12660

PATIENT
  Sex: Male
  Weight: 61 kg

DRUGS (4)
  1. PLACEBO COMP-PLA+ [Suspect]
     Indication: ACUTE CORONARY SYNDROME
     Dosage: PLACEBO
     Route: 048
     Dates: start: 20070712, end: 20070820
  2. ADVAIR HFA [Suspect]
  3. XOPENEX [Suspect]
  4. COMBIVENT [Suspect]

REACTIONS (4)
  - CHEST PAIN [None]
  - DISEASE PROGRESSION [None]
  - DYSPNOEA [None]
  - OEDEMA PERIPHERAL [None]
